FAERS Safety Report 5524396-2 (Version None)
Quarter: 2007Q4

REPORT INFORMATION
  Report Type: 
  Country: None (occurrence: None)
  Receive Date: 20071121
  Receipt Date: 20071113
  Transmission Date: 20080405
  Serious: Yes (Other)
  Sender: FDA-Public Use
  Company Number: GB-PFIZER INC-2007096797

PATIENT
  Sex: Female

DRUGS (1)
  1. LYRICA [Suspect]
     Indication: GUILLAIN-BARRE SYNDROME
     Route: 048

REACTIONS (4)
  - HYPERAESTHESIA [None]
  - MUSCLE DISORDER [None]
  - MUSCLE TWITCHING [None]
  - TENSION [None]
